FAERS Safety Report 6029306-X (Version None)
Quarter: 2009Q1

REPORT INFORMATION
  Report Type: 
  Country: None (occurrence: None)
  Receive Date: 20090102
  Receipt Date: 20081220
  Transmission Date: 20090719
  Serious: Yes (Other)
  Sender: FDA-Public Use
  Company Number: CHPA2008US22676

PATIENT
  Sex: Female

DRUGS (3)
  1. VOLTAREN [Suspect]
     Indication: PLANTAR FASCIITIS
     Dosage: 4 G, QID, TOPICAL; 4 G, QD, TOPICAL
     Route: 061
     Dates: end: 20081217
  2. VOLTAREN [Suspect]
     Indication: PLANTAR FASCIITIS
     Dosage: 4 G, QID, TOPICAL; 4 G, QD, TOPICAL
     Route: 061
     Dates: start: 20081101
  3. DRUG THERAPY NOS (DRUG THERAPY NOS) [Concomitant]

REACTIONS (1)
  - AMNESIA [None]
